FAERS Safety Report 7387257-2 (Version None)
Quarter: 2011Q1

REPORT INFORMATION
  Report Type: 
  Country: None (occurrence: None)
  Receive Date: 20110331
  Receipt Date: 20110330
  Transmission Date: 20110831
  Serious: Yes (Other)
  Sender: FDA-Public Use
  Company Number: JP-PFIZER INC-2011037901

PATIENT
  Age: 88 Year
  Sex: Female

DRUGS (1)
  1. LYRICA [Suspect]
     Indication: BACK PAIN
     Dosage: 150 MG/DAY
     Route: 048
     Dates: start: 20110126

REACTIONS (2)
  - OEDEMA PERIPHERAL [None]
  - BLOOD THYROID STIMULATING HORMONE INCREASED [None]
